FAERS Safety Report 6358439-3 (Version None)
Quarter: 2009Q3

REPORT INFORMATION
  Report Type: 
  Country: None (occurrence: None)
  Receive Date: 20090911
  Receipt Date: 20090901
  Transmission Date: 20100115
  Serious: Yes (Hospitalization)
  Sender: FDA-Public Use
  Company Number: 2009AL005740

PATIENT
  Age: 50 Year
  Sex: Female
  Weight: 43 kg

DRUGS (5)
  1. CLINDAMYCIN PHOSPHATE [Suspect]
     Indication: FURUNCLE
  2. PANTOPRAZOLE SODIUM [Concomitant]
  3. CALCIUM [Concomitant]
  4. VITAMIN D [Concomitant]
  5. RISEDRONIC ACID [Concomitant]

REACTIONS (11)
  - AGITATION [None]
  - CONDITION AGGRAVATED [None]
  - DYSPHAGIA [None]
  - GENERAL PHYSICAL HEALTH DETERIORATION [None]
  - HEPATIC STEATOSIS [None]
  - MALNUTRITION [None]
  - ODYNOPHAGIA [None]
  - OESOPHAGITIS [None]
  - REFLUX OESOPHAGITIS [None]
  - TACHYCARDIA [None]
  - WEIGHT DECREASED [None]
